FAERS Safety Report 19367366 (Version 1)
Quarter: 2021Q2

REPORT INFORMATION
  Report Type: Spontaneous
  Country: ES (occurrence: ES)
  Receive Date: 20210603
  Receipt Date: 20210603
  Transmission Date: 20210717
  Serious: Yes (Other)
  Sender: FDA-Public Use
  Company Number: ES-TEVA-2021-ES-1918345

PATIENT
  Age: 83 Year
  Sex: Female

DRUGS (1)
  1. AMOXICILINA/ACIDO CLAVULANICO 500 MG/125 MG 30 COMPRIMIDOS [Suspect]
     Active Substance: AMOXICILLIN\CLAVULANIC ACID
     Indication: CELLULITIS
     Dosage: 3 DOSAGE FORMS DAILY; AMOXICILLIN / CLAVULANIC 500/125 MG 1 TABLET / 8H
     Route: 065
     Dates: start: 20210317

REACTIONS (4)
  - Diarrhoea [Unknown]
  - Dysbiosis [Unknown]
  - Antibiotic associated colitis [Unknown]
  - Fungal infection [Unknown]

NARRATIVE: CASE EVENT DATE: 202103
